FAERS Safety Report 7564983-3 (Version None)
Quarter: 2011Q2

REPORT INFORMATION
  Report Type: 
  Country: None (occurrence: None)
  Receive Date: 20110622
  Receipt Date: 20110314
  Transmission Date: 20111010
  Serious: Yes (Death)
  Sender: FDA-Public Use
  Company Number: US-MYLANLABS-2011S1005391

PATIENT
  Age: 64 Year
  Sex: Male

DRUGS (8)
  1. CLOZAPINE [Suspect]
     Indication: SCHIZOPHRENIA
     Route: 048
     Dates: start: 20110307
  2. TRAZODONE HCL [Concomitant]
  3. RISPERIDONE [Concomitant]
  4. OXYBUTYNIN [Concomitant]
  5. METOPROLOL TARTRATE [Concomitant]
  6. RANITIDINE [Concomitant]
  7. POLYETHYLENE GLYCOL [Concomitant]
  8. DOCUSATE SODIUM [Concomitant]

REACTIONS (1)
  - DEATH [None]
